FAERS Safety Report 6673694-8 (Version None)
Quarter: 2010Q1

REPORT INFORMATION
  Report Type: 
  Country: None (occurrence: None)
  Receive Date: 20100329
  Receipt Date: 20090824
  Transmission Date: 20100710
  Serious: Yes (Other)
  Sender: FDA-Public Use
  Company Number: 2009236238

PATIENT
  Age: 19 Year
  Sex: Female
  Weight: 88.4 kg

DRUGS (3)
  1. GEODON [Suspect]
     Indication: BIPOLAR I DISORDER
     Dosage: 40 MG, 1X/DAY, ORAL
     Route: 048
     Dates: start: 20090617
  2. BUPROPION HCL [Concomitant]
  3. ORAL CONTRACEPTIVE (ORAL CONTRACEPTIVE NOS) [Concomitant]

REACTIONS (7)
  - AMNESIA [None]
  - ANGER [None]
  - CONFUSIONAL STATE [None]
  - MANIA [None]
  - RASH [None]
  - RESTLESSNESS [None]
  - YAWNING [None]
